FAERS Safety Report 7433476-6 (Version None)
Quarter: 2011Q2

REPORT INFORMATION
  Report Type: 
  Country: None (occurrence: None)
  Receive Date: 20110422
  Receipt Date: 20110101
  Transmission Date: 20111010
  Serious: No
  Sender: FDA-Public Use
  Company Number: US-MUTUAL PHARMACEUTICAL COMPANY, INC.-2011P1003710

PATIENT
  Sex: Male
  Weight: 115.67 kg

DRUGS (4)
  1. COLCRYS [Suspect]
     Indication: GOUT
     Route: 048
     Dates: start: 20101227
  2. ASPIRIN [Concomitant]
     Route: 048
  3. TART CHERRY AND HERB MIX [Concomitant]
  4. COLCRYS [Suspect]
     Dates: start: 20101229

REACTIONS (2)
  - JOINT SWELLING [None]
  - DIARRHOEA [None]
